FAERS Safety Report 21186703 (Version 1)
Quarter: 2022Q3

REPORT INFORMATION
  Report Type: Spontaneous
  Country: CN (occurrence: CN)
  Receive Date: 20220808
  Receipt Date: 20220808
  Transmission Date: 20221027
  Serious: Yes (Other)
  Sender: FDA-Public Use
  Company Number: CN-009507513-2208CHN002392

PATIENT
  Age: 67 Year
  Sex: Male
  Weight: 74 kg

DRUGS (2)
  1. KEYTRUDA [Suspect]
     Active Substance: PEMBROLIZUMAB
     Indication: Lung neoplasm malignant
     Dosage: 200 MG, ONCE
     Route: 041
     Dates: start: 20220724, end: 20220724
  2. CATEQUENTINIB DIHYDROCHLORIDE [Concomitant]
     Active Substance: CATEQUENTINIB DIHYDROCHLORIDE
     Indication: Lung neoplasm malignant
     Dosage: 10 MG, QD
     Route: 048
     Dates: start: 20220726, end: 20220731

REACTIONS (1)
  - Myelosuppression [Recovering/Resolving]

NARRATIVE: CASE EVENT DATE: 20220726
